FAERS Safety Report 4549441-2 (Version None)
Quarter: 2005Q1

REPORT INFORMATION
  Report Type: 
  Country: None (occurrence: None)
  Receive Date: 20050106
  Receipt Date: 20041220
  Transmission Date: 20050727
  Serious: No
  Sender: FDA-Public Use
  Company Number: USA041080612

PATIENT
  Age: 13 Year
  Sex: Male
  Weight: 41 kg

DRUGS (2)
  1. STRATTERA [Suspect]
     Indication: ATTENTION DEFICIT/HYPERACTIVITY DISORDER
     Dosage: 80 MG/1 DAY
     Dates: start: 20030101
  2. CLONIDINE [Concomitant]

REACTIONS (13)
  - BLOOD ALKALINE PHOSPHATASE INCREASED [None]
  - GLOSSODYNIA [None]
  - GROWTH ACCELERATED [None]
  - INFLUENZA LIKE ILLNESS [None]
  - INSOMNIA [None]
  - LABORATORY TEST ABNORMAL [None]
  - MUCOSAL EROSION [None]
  - RASH MACULAR [None]
  - STRAWBERRY TONGUE [None]
  - TONGUE BLISTERING [None]
  - TONGUE DISCOLOURATION [None]
  - VIRAL INFECTION [None]
  - WEIGHT INCREASED [None]
